FAERS Safety Report 13176437 (Version 1)
Quarter: 2017Q1

REPORT INFORMATION
  Report Type: Spontaneous
  Country: US (occurrence: US)
  Receive Date: 20170201
  Receipt Date: 20170201
  Transmission Date: 20170428
  Serious: Yes (Death)
  Sender: FDA-Public Use
  Company Number: US-PFIZER INC-2017044800

PATIENT
  Age: 52 Year
  Sex: Female

DRUGS (8)
  1. TRIAZOLAM. [Concomitant]
     Active Substance: TRIAZOLAM
     Dosage: 1X/DAY
     Route: 048
  2. DOXEPIN HCL [Suspect]
     Active Substance: DOXEPIN HYDROCHLORIDE
     Indication: INSOMNIA
     Dosage: 25 MG, 1X/DAY
     Route: 048
     Dates: start: 20110101
  3. BACLOFEN. [Concomitant]
     Active Substance: BACLOFEN
     Dosage: 20 MG, 3X/DAY
     Route: 048
  4. ATENOLOL. [Suspect]
     Active Substance: ATENOLOL
     Dosage: 50 MG, 1X/DAY
     Route: 048
  5. OXYCODONE HYDROCHLORIDE. [Concomitant]
     Active Substance: OXYCODONE HYDROCHLORIDE
     Dosage: 80 MG, 1XHOUR
     Route: 048
  6. FEMHRT [Concomitant]
     Active Substance: ETHINYL ESTRADIOL\NORETHINDRONE ACETATE
     Dosage: 0.5 MG, 1X/DAY
     Route: 048
  7. HYDROCODONE [Concomitant]
     Active Substance: HYDROCODONE
     Dosage: 1 DF, EVERY 4 TO 6 HOURS
     Route: 048
  8. TEMAZEPAM. [Suspect]
     Active Substance: TEMAZEPAM
     Indication: INSOMNIA
     Dosage: 30 MG, 1X/DAY
     Route: 048
     Dates: start: 20121203

REACTIONS (4)
  - Insomnia [Unknown]
  - Drug ineffective [Unknown]
  - Completed suicide [Fatal]
  - Abdominal discomfort [Unknown]
